FAERS Safety Report 7379691-1 (Version None)
Quarter: 2011Q1

REPORT INFORMATION
  Report Type: 
  Country: None (occurrence: None)
  Receive Date: 20110329
  Receipt Date: 20110322
  Transmission Date: 20110831
  Serious: No
  Sender: FDA-Public Use
  Company Number: US-PFIZER INC-2011045968

PATIENT
  Sex: Male

DRUGS (2)
  1. ADVIL LIQUI-GELS [Suspect]
     Indication: BACK PAIN
  2. ADVIL LIQUI-GELS [Suspect]
     Indication: PAIN
     Dosage: UNK

REACTIONS (1)
  - DRUG INEFFECTIVE [None]
